FAERS Safety Report 4640015-1 (Version None)
Quarter: 2005Q2

REPORT INFORMATION
  Report Type: 
  Country: None (occurrence: None)
  Receive Date: 20050415
  Receipt Date: 20050329
  Transmission Date: 20051028
  Serious: Yes (Hospitalization)
  Sender: FDA-Public Use
  Company Number: FR_050306142

PATIENT
  Age: 72 Year
  Sex: Male

DRUGS (17)
  1. DOBUTREX [Suspect]
     Indication: SEPSIS
     Dosage: 125 ML DAY
     Dates: start: 20041212, end: 20041220
  2. XIGRIS [Concomitant]
  3. NORADRENALINE [Concomitant]
  4. ADRENALINE [Concomitant]
  5. GLYPRESSINE (TERLIPRESSIN ACETATE) [Concomitant]
  6. ENOXIMONE [Concomitant]
  7. CORDARONE [Concomitant]
  8. CALCIPARINE [Concomitant]
  9. VANCOMYCIN [Concomitant]
  10. CIPROFLOXACIN HCL [Concomitant]
  11. FLUCONAZOLE [Concomitant]
  12. PRIMAXIN [Concomitant]
  13. FUROSEMIDE [Concomitant]
  14. BUMETANIDE [Concomitant]
  15. PROPOFOL [Concomitant]
  16. NIMBEX [Concomitant]
  17. NITROUS OXIDE [Concomitant]

REACTIONS (8)
  - ANURIA [None]
  - CATHETER RELATED INFECTION [None]
  - CYANOSIS [None]
  - DECUBITUS ULCER [None]
  - DIALYSIS [None]
  - ESCHERICHIA INFECTION [None]
  - PERIPHERAL ISCHAEMIA [None]
  - TOE AMPUTATION [None]
